FAERS Safety Report 9359863 (Version 2)
Quarter: 2013Q3

REPORT INFORMATION
  Report Type: Spontaneous
  Country: US (occurrence: US)
  Receive Date: 20130621
  Receipt Date: 20130703
  Transmission Date: 20140515
  Serious: Yes (Death, Other)
  Sender: FDA-Public Use
  Company Number: US-009507513-1306USA006768

PATIENT
  Sex: 0

DRUGS (2)
  1. REBETOL [Suspect]
     Indication: HEPATITIS C
     Dosage: 7MG/KG, 10MG/KG AND 14MG/KG AT WEEK 0,4 AND 8.
  2. PEGINTERFERON ALFA-2A [Suspect]
     Indication: HEPATITIS C
     Dosage: 90MCG, 135MCG AND 180MCG AT WEEK 0,4 AND 8, WEELY.

REACTIONS (1)
  - Sepsis [Fatal]
